FAERS Safety Report 23985197 (Version 1)
Quarter: 2024Q2

REPORT INFORMATION
  Report Type: Report from Study
  Country: BR (occurrence: BR)
  Receive Date: 20240618
  Receipt Date: 20240618
  Transmission Date: 20240716
  Serious: Yes (Hospitalization, Other)
  Sender: FDA-Public Use
  Company Number: BR-UCBSA-2024030539

PATIENT
  Sex: Female
  Weight: 75 kg

DRUGS (1)
  1. CERTOLIZUMAB PEGOL [Suspect]
     Active Substance: CERTOLIZUMAB PEGOL
     Indication: Ankylosing spondylitis
     Dosage: UNK
     Dates: start: 202403, end: 202404

REACTIONS (5)
  - Cholelithiasis [Recovering/Resolving]
  - Appendicectomy [Recovered/Resolved]
  - Cholelithotomy [Recovering/Resolving]
  - Procedural pain [Unknown]
  - Intentional dose omission [Unknown]

NARRATIVE: CASE EVENT DATE: 20240101
